FAERS Safety Report 7654314-2 (Version None)
Quarter: 2011Q3

REPORT INFORMATION
  Report Type: 
  Country: None (occurrence: None)
  Receive Date: 20110803
  Receipt Date: 20110727
  Transmission Date: 20111222
  Serious: Yes (Hospitalization, Other)
  Sender: FDA-Public Use
  Company Number: US-BAYER-2011-030140

PATIENT
  Age: 49 Year
  Sex: Female
  Weight: 61.224 kg

DRUGS (1)
  1. YAZ [Suspect]
     Indication: MENORRHAGIA
     Dosage: UNK
     Dates: start: 20090312, end: 20090419

REACTIONS (2)
  - PAIN [None]
  - MYOCARDIAL INFARCTION [None]
